FAERS Safety Report 8344569 (Version 3)
Quarter: 2012Q4

REPORT INFORMATION
  Report Type: 
  Country: US (occurrence: US)
  Receive Date: 20120119
  Receipt Date: 20121219
  Transmission Date: 20130627
  Serious: Yes (Other)
  Sender: FDA-Public Use
  Company Number: US-ASTRAZENECA-2012SE02689

PATIENT
  Age: 74 Year
  Sex: Female

DRUGS (2)
  1. ATACAND [Suspect]
     Route: 048
  2. TOPROL XL [Suspect]
     Route: 048

REACTIONS (15)
  - Ligament rupture [Unknown]
  - Cyst rupture [Unknown]
  - Fall [Unknown]
  - Eye injury [Unknown]
  - Ligament injury [Unknown]
  - Cyst [Unknown]
  - Thrombosis [Unknown]
  - Adverse event [Unknown]
  - Blood pressure increased [Unknown]
  - Hypokinesia [Unknown]
  - Malaise [Unknown]
  - Musculoskeletal pain [Unknown]
  - Chest pain [Unknown]
  - Arthralgia [Unknown]
  - Intentional drug misuse [Unknown]
